FAERS Safety Report 25224119 (Version 1)
Quarter: 2025Q2

REPORT INFORMATION
  Report Type: Spontaneous
  Country: CO (occurrence: CO)
  Receive Date: 20250422
  Receipt Date: 20250422
  Transmission Date: 20250717
  Serious: Yes (Hospitalization)
  Sender: REGENERON
  Company Number: CO-SA-2025SA029194

PATIENT
  Age: 72 Year
  Sex: Female

DRUGS (2)
  1. PRALUENT [Suspect]
     Active Substance: ALIROCUMAB
     Indication: Hypercholesterolaemia
     Dosage: 75 MG, QOW, SOLUTION FOR INJECTION
     Route: 058
     Dates: start: 202306
  2. PRALUENT [Suspect]
     Active Substance: ALIROCUMAB
     Dosage: 150 MG, QOW, SOLUTION FOR INJECTION
     Route: 058
     Dates: start: 202310

REACTIONS (4)
  - Pain in extremity [Recovered/Resolved]
  - Cough [Recovering/Resolving]
  - Nasal congestion [Recovering/Resolving]
  - Influenza [Recovering/Resolving]

NARRATIVE: CASE EVENT DATE: 20250118
